FAERS Safety Report 5776833-6 (Version None)
Quarter: 2008Q2

REPORT INFORMATION
  Report Type: 
  Country: None (occurrence: None)
  Receive Date: 20080618
  Receipt Date: 20080618
  Transmission Date: 20081010
  Serious: Yes (Congenital Anomaly)
  Sender: FDA-Public Use
  Company Number: GB-ABBOTT-08P-167-0443098-00

PATIENT
  Sex: Female
  Weight: 3.76 kg

DRUGS (1)
  1. EPILIM [Suspect]
     Indication: DRUG EXPOSURE DURING PREGNANCY
     Route: 064

REACTIONS (19)
  - ANOMALY OF ORBIT, CONGENITAL [None]
  - CARDIAC MURMUR [None]
  - CONGENITAL FOOT MALFORMATION [None]
  - CONGENITAL NOSE MALFORMATION [None]
  - DEVELOPMENTAL DELAY [None]
  - DRUG EXPOSURE DURING PREGNANCY [None]
  - DYSMORPHISM [None]
  - ENAMEL ANOMALY [None]
  - EXPRESSIVE LANGUAGE DISORDER [None]
  - FLOPPY INFANT [None]
  - FOETAL ANTICONVULSANT SYNDROME [None]
  - FOOT DEFORMITY [None]
  - LIP DISORDER [None]
  - LOWER RESPIRATORY TRACT INFECTION [None]
  - OTITIS MEDIA [None]
  - POOR SUCKING REFLEX [None]
  - PSYCHOMOTOR SKILLS IMPAIRED [None]
  - READING DISORDER [None]
  - SPEECH DISORDER DEVELOPMENTAL [None]
